FAERS Safety Report 15190392 (Version 1)
Quarter: 2018Q3

REPORT INFORMATION
  Report Type: Spontaneous
  Country: US (occurrence: US)
  Receive Date: 20180625
  Receipt Date: 20180625
  Transmission Date: 20181010
  Serious: Yes (Other)
  Sender: FDA-Public Use
  Company Number: None

PATIENT
  Age: 10 Year
  Sex: Male
  Weight: 26.2 kg

DRUGS (5)
  1. BLINATUMOMAB 35MCG VIAL AMGEN [Suspect]
     Active Substance: BLINATUMOMAB
     Route: 042
     Dates: start: 20180525, end: 20180615
  2. BLINATUMOMAB 35MCG VIAL AMGEN [Suspect]
     Active Substance: BLINATUMOMAB
     Indication: PHILADELPHIA CHROMOSOME POSITIVE
     Route: 042
     Dates: start: 20180518, end: 20180524
  3. DASATINIB. [Concomitant]
     Active Substance: DASATINIB
  4. BLINATUMOMAB 35MCG VIAL AMGEN [Suspect]
     Active Substance: BLINATUMOMAB
     Indication: ACUTE LYMPHOCYTIC LEUKAEMIA RECURRENT
     Route: 042
     Dates: start: 20180518, end: 20180524
  5. HIZENTRA [Concomitant]
     Active Substance: HUMAN IMMUNOGLOBULIN G

REACTIONS (8)
  - Pyrexia [None]
  - Tachycardia [None]
  - Blood pressure decreased [None]
  - Neutrophil count decreased [None]
  - Infusion related reaction [None]
  - Therapy change [None]
  - Back pain [None]
  - Orthostatic hypotension [None]

NARRATIVE: CASE EVENT DATE: 20180518
